FAERS Safety Report 6179389-1 (Version None)
Quarter: 2009Q2

REPORT INFORMATION
  Report Type: 
  Country: None (occurrence: None)
  Receive Date: 20090505
  Receipt Date: 20090427
  Transmission Date: 20091009
  Serious: Yes (Other)
  Sender: FDA-Public Use
  Company Number: A0653062A

PATIENT
  Sex: Male

DRUGS (1)
  1. AVANDIA [Suspect]
     Route: 048
     Dates: end: 20070101

REACTIONS (3)
  - ARTERIAL OCCLUSIVE DISEASE [None]
  - INJURY [None]
  - MYOCARDIAL INFARCTION [None]
